FAERS Safety Report 6490011-7 (Version None)
Quarter: 2009Q4

REPORT INFORMATION
  Report Type: 
  Country: None (occurrence: None)
  Receive Date: 20091211
  Receipt Date: 20091201
  Transmission Date: 20100525
  Serious: Yes (Other)
  Sender: FDA-Public Use
  Company Number: US-JNJFOC-20091202761

PATIENT
  Sex: Male

DRUGS (1)
  1. REMICADE [Suspect]
     Indication: DRUG USE FOR UNKNOWN INDICATION
     Dosage: FOR 5 MONTHS
     Route: 042
     Dates: start: 20040101

REACTIONS (2)
  - LOSS OF CONSCIOUSNESS [None]
  - URTICARIA [None]
